FAERS Safety Report 12168165 (Version 1)
Quarter: 2016Q1

REPORT INFORMATION
  Report Type: Spontaneous
  Country: DE (occurrence: DE)
  Receive Date: 20160310
  Receipt Date: 20160310
  Transmission Date: 20160526
  Serious: Yes (Hospitalization, Other)
  Sender: FDA-Public Use
  Company Number: PHHY2016DE029041

PATIENT
  Sex: Female

DRUGS (1)
  1. DIOVAN [Suspect]
     Active Substance: VALSARTAN
     Indication: PRODUCT USED FOR UNKNOWN INDICATION
     Dosage: 0.5 DF, QD
     Route: 065
     Dates: start: 2011

REACTIONS (11)
  - Human papilloma virus test positive [Unknown]
  - Drug prescribing error [Unknown]
  - Cystitis [Unknown]
  - Infection susceptibility increased [Unknown]
  - Weight decreased [Unknown]
  - Cervicitis human papilloma virus [Unknown]
  - Gastrointestinal malformation [Unknown]
  - Blood immunoglobulin A decreased [Unknown]
  - Oropharyngeal pain [Not Recovered/Not Resolved]
  - Wrong technique in product usage process [Unknown]
  - Immune system disorder [Unknown]

NARRATIVE: CASE EVENT DATE: 2011
